FAERS Safety Report 10205089 (Version 1)
Quarter: 2014Q2

REPORT INFORMATION
  Report Type: Spontaneous
  Country: US (occurrence: US)
  Receive Date: 20140529
  Receipt Date: 20140529
  Transmission Date: 20141212
  Serious: Yes (Other)
  Sender: FDA-Public Use
  Company Number: US-GILEAD-2014-0103673

PATIENT
  Sex: Female

DRUGS (1)
  1. LETAIRIS [Suspect]
     Indication: PRODUCT USED FOR UNKNOWN INDICATION
     Dosage: 5 MG, UNK
     Route: 065

REACTIONS (6)
  - Diabetes mellitus inadequate control [Unknown]
  - Atrial fibrillation [Unknown]
  - Chest pain [Unknown]
  - Fatigue [Unknown]
  - Oedema peripheral [Unknown]
  - Fluid retention [Unknown]
